FAERS Safety Report 10018674 (Version 2)
Quarter: 2014Q2

REPORT INFORMATION
  Report Type: Report from Study
  Country: CO (occurrence: CO)
  Receive Date: 20140318
  Receipt Date: 20140613
  Transmission Date: 20141212
  Serious: Yes (Other)
  Sender: FDA-Public Use
  Company Number: CO-ABBVIE-14P-036-1213564-00

PATIENT
  Age: 34 Year
  Sex: Male
  Weight: 88 kg

DRUGS (1)
  1. HUMIRA [Suspect]
     Indication: PSORIASIS
     Route: 058
     Dates: start: 20100428, end: 20140225

REACTIONS (5)
  - Gastric disorder [Unknown]
  - Catheter site pain [Recovering/Resolving]
  - Catheter site inflammation [Recovering/Resolving]
  - Catheter site haematoma [Recovering/Resolving]
  - Catheter site infection [Recovering/Resolving]
